FAERS Safety Report 4595555-0 (Version None)
Quarter: 2005Q1

REPORT INFORMATION
  Report Type: 
  Country: None (occurrence: None)
  Receive Date: 20050224
  Receipt Date: 20050203
  Transmission Date: 20050727
  Serious: Yes (Hospitalization)
  Sender: FDA-Public Use
  Company Number: US_0501110591

PATIENT
  Age: 78 Year
  Sex: Female

DRUGS (4)
  1. CYMBALTA [Suspect]
     Dosage: 60 MG DAY
  2. NAMENDA (MEMANTINE HYDROCHLORIDE) [Concomitant]
  3. SYNTHROID [Concomitant]
  4. ARICEPT [Concomitant]

REACTIONS (1)
  - BLOOD SODIUM DECREASED [None]
